FAERS Safety Report 10296202 (Version 2)
Quarter: 2014Q3

REPORT INFORMATION
  Report Type: Report from Study
  Country: JP (occurrence: JP)
  Receive Date: 20140711
  Receipt Date: 20140711
  Transmission Date: 20150326
  Serious: Yes (Hospitalization)
  Sender: FDA-Public Use
  Company Number: JP-009507513-1404JPN015340

PATIENT
  Age: 68 Year
  Sex: Male

DRUGS (52)
  1. APREPITANT [Suspect]
     Active Substance: APREPITANT
     Dosage: 125 MG, QD, 3RD COURSE
     Route: 048
     Dates: start: 20120409, end: 20120409
  2. APREPITANT [Suspect]
     Active Substance: APREPITANT
     Dosage: 125 MG, QD, 8TH COURSE
     Route: 048
     Dates: start: 20120719, end: 20120719
  3. ALOXI [Concomitant]
     Active Substance: PALONOSETRON HYDROCHLORIDE
     Dosage: 0.75 MG
     Dates: start: 20120305, end: 20120305
  4. ALOXI [Concomitant]
     Active Substance: PALONOSETRON HYDROCHLORIDE
     Dosage: 0.75 MG
     Dates: start: 20120409, end: 20120409
  5. DECADRON [Concomitant]
     Active Substance: DEXAMETHASONE
     Dosage: 6 MG
     Dates: start: 20120410, end: 20120412
  6. DECADRON [Concomitant]
     Active Substance: DEXAMETHASONE
     Dosage: 6 MG
     Dates: start: 20120720, end: 20120722
  7. APREPITANT [Suspect]
     Active Substance: APREPITANT
     Dosage: 125 MG, QD, 5TH COURSE
     Route: 048
     Dates: start: 20120531, end: 20120531
  8. APREPITANT [Suspect]
     Active Substance: APREPITANT
     Dosage: 125 MG, QD, 6TH COURSE
     Route: 048
     Dates: start: 20120618, end: 20120618
  9. APREPITANT [Suspect]
     Active Substance: APREPITANT
     Dosage: 80 MG, QD
     Route: 048
     Dates: start: 20120410, end: 20120411
  10. APREPITANT [Suspect]
     Active Substance: APREPITANT
     Dosage: 80 MG, QD
     Route: 048
     Dates: start: 20120426, end: 20120427
  11. APREPITANT [Suspect]
     Active Substance: APREPITANT
     Dosage: 80 MG, QD
     Route: 048
     Dates: start: 20120703, end: 20120704
  12. APREPITANT [Suspect]
     Active Substance: APREPITANT
     Dosage: 80 MG, QD
     Route: 048
     Dates: start: 20120720, end: 20120721
  13. ALOXI [Concomitant]
     Active Substance: PALONOSETRON HYDROCHLORIDE
     Dosage: 0.75 MG
     Dates: start: 20120531, end: 20120531
  14. DECADRON [Concomitant]
     Active Substance: DEXAMETHASONE
     Dosage: 4 MG
     Dates: start: 20120306, end: 20120308
  15. DECADRON [Concomitant]
     Active Substance: DEXAMETHASONE
     Dosage: 6 MG
     Dates: start: 20120322, end: 20120324
  16. APREPITANT [Suspect]
     Active Substance: APREPITANT
     Indication: PROPHYLAXIS OF NAUSEA AND VOMITING
     Dosage: 80 MG, QD
     Route: 048
     Dates: start: 20120306, end: 20120307
  17. APREPITANT [Suspect]
     Active Substance: APREPITANT
     Dosage: 80 MG, QD
     Route: 048
     Dates: start: 20120322, end: 20120323
  18. DEXART [Concomitant]
     Active Substance: DEXAMETHASONE SODIUM PHOSPHATE
     Dosage: 6.60 MG
     Dates: start: 20120321, end: 20120321
  19. ALOXI [Concomitant]
     Active Substance: PALONOSETRON HYDROCHLORIDE
     Dosage: 0.75 MG
     Dates: start: 20120618, end: 20120618
  20. ALOXI [Concomitant]
     Active Substance: PALONOSETRON HYDROCHLORIDE
     Dosage: 0.75 MG
     Dates: start: 20120321, end: 20120321
  21. DECADRON [Concomitant]
     Active Substance: DEXAMETHASONE
     Dosage: 6 MG
     Dates: start: 20120703, end: 20120705
  22. CAMPTO [Concomitant]
     Active Substance: IRINOTECAN
     Dosage: UNK
     Dates: start: 20120305, end: 20120305
  23. CAMPTO [Concomitant]
     Active Substance: IRINOTECAN
     Dosage: UNK
     Dates: start: 20120425, end: 20120425
  24. APREPITANT [Suspect]
     Active Substance: APREPITANT
     Dosage: 125 MG, QD, 7TH COURSE
     Route: 048
     Dates: start: 20120702, end: 20120702
  25. DEXART [Concomitant]
     Active Substance: DEXAMETHASONE SODIUM PHOSPHATE
     Dosage: 6.60 MG
     Dates: start: 20120409, end: 20120409
  26. ALOXI [Concomitant]
     Active Substance: PALONOSETRON HYDROCHLORIDE
     Dosage: 0.75 MG
     Dates: start: 20120425, end: 20120425
  27. DECADRON [Concomitant]
     Active Substance: DEXAMETHASONE
     Dosage: 6 MG
     Dates: start: 20120619, end: 20120621
  28. CAMPTO [Concomitant]
     Active Substance: IRINOTECAN
     Dosage: UNK
     Dates: start: 20120531, end: 20120531
  29. CAMPTO [Concomitant]
     Active Substance: IRINOTECAN
     Dosage: UNK
     Dates: start: 20120618, end: 20120618
  30. CAMPTO [Concomitant]
     Active Substance: IRINOTECAN
     Dosage: UNK
     Dates: start: 20120719, end: 20120719
  31. APREPITANT [Suspect]
     Active Substance: APREPITANT
     Dosage: 125 MG, QD, 2ND COURSE
     Route: 048
     Dates: start: 20120321, end: 20120321
  32. APREPITANT [Suspect]
     Active Substance: APREPITANT
     Dosage: 125 MG, QD, 4TH COURSE
     Route: 048
     Dates: start: 20120425, end: 20140425
  33. DEXART [Concomitant]
     Active Substance: DEXAMETHASONE SODIUM PHOSPHATE
     Dosage: 6.60 MG
     Dates: start: 20120425, end: 20120425
  34. ALOXI [Concomitant]
     Active Substance: PALONOSETRON HYDROCHLORIDE
     Dosage: 0.75 MG
     Dates: start: 20120702, end: 20120702
  35. DECADRON [Concomitant]
     Active Substance: DEXAMETHASONE
     Dosage: 6 MG
     Dates: start: 20120426, end: 20120428
  36. CAMPTO [Concomitant]
     Active Substance: IRINOTECAN
     Dosage: UNK
     Dates: start: 20120321, end: 20120321
  37. MAGLAX (MAGNESIUM OXIDE) [Concomitant]
     Active Substance: MAGNESIUM OXIDE
     Dosage: UNK
     Dates: start: 20120305
  38. APREPITANT [Suspect]
     Active Substance: APREPITANT
     Dosage: 80 MG, QD
     Route: 048
     Dates: start: 20120619, end: 20120620
  39. DEXART [Concomitant]
     Active Substance: DEXAMETHASONE SODIUM PHOSPHATE
     Dosage: 6.60 MG
     Dates: start: 20120618, end: 20120618
  40. CAMPTO [Concomitant]
     Active Substance: IRINOTECAN
     Dosage: UNK
     Dates: start: 20120702, end: 20120702
  41. SENNOSIDES [Concomitant]
     Active Substance: SENNOSIDES
     Dosage: UNK
     Dates: start: 20120305
  42. DEXART [Concomitant]
     Active Substance: DEXAMETHASONE SODIUM PHOSPHATE
     Dosage: 4.95 MG
     Dates: start: 20120305, end: 20120305
  43. DEXART [Concomitant]
     Active Substance: DEXAMETHASONE SODIUM PHOSPHATE
     Dosage: 6.60 MG
     Dates: start: 20120531, end: 20120531
  44. DEXART [Concomitant]
     Active Substance: DEXAMETHASONE SODIUM PHOSPHATE
     Dosage: 6.60 MG
     Dates: start: 20120702, end: 20120702
  45. DEXART [Concomitant]
     Active Substance: DEXAMETHASONE SODIUM PHOSPHATE
     Dosage: 6.60 MG
     Dates: start: 20120719, end: 20120719
  46. ALOXI [Concomitant]
     Active Substance: PALONOSETRON HYDROCHLORIDE
     Dosage: 0.75 MG
     Dates: start: 20120719, end: 20120719
  47. CAMPTO [Concomitant]
     Active Substance: IRINOTECAN
     Dosage: UNK
     Dates: start: 20120409, end: 20120409
  48. APREPITANT [Suspect]
     Active Substance: APREPITANT
     Indication: PROPHYLAXIS OF NAUSEA AND VOMITING
     Dosage: 125 MG, QD, 1ST COURSE
     Route: 048
     Dates: start: 20120305, end: 20120305
  49. APREPITANT [Suspect]
     Active Substance: APREPITANT
     Dosage: 80 MG, QD
     Route: 048
     Dates: start: 20120601, end: 20120602
  50. DECADRON [Concomitant]
     Active Substance: DEXAMETHASONE
     Dosage: 6 MG
     Dates: start: 20120601, end: 20120603
  51. TAKEPRON [Concomitant]
     Active Substance: LANSOPRAZOLE
     Dosage: UNK
     Dates: start: 20120305
  52. SENNA [Concomitant]
     Active Substance: SENNA LEAF\SENNOSIDES\SENNOSIDES A AND B
     Dosage: UNK
     Dates: start: 20120305

REACTIONS (1)
  - Deep vein thrombosis [Recovered/Resolved]

NARRATIVE: CASE EVENT DATE: 20120514
